FAERS Safety Report 21885607 (Version 1)
Quarter: 2023Q1

REPORT INFORMATION
  Report Type: Spontaneous
  Country: BE (occurrence: BE)
  Receive Date: 20230119
  Receipt Date: 20230119
  Transmission Date: 20230417
  Serious: Yes (Hospitalization)
  Sender: FDA-Public Use
  Company Number: None

PATIENT
  Age: 69 Year
  Sex: Female
  Weight: 68.2 kg

DRUGS (11)
  1. CARBOPLATIN [Suspect]
     Active Substance: CARBOPLATIN
     Indication: Product used for unknown indication
     Route: 065
     Dates: end: 20221118
  2. Furadantin 100MG [Concomitant]
     Indication: Product used for unknown indication
     Dosage: 300 MG?3X DAAGS GEDURENDE 5 DAGEN, ENGLISH TRANSLATION: 3 TIMES A DAY 5 DAYS LONG
     Route: 065
  3. MOVICOL [Concomitant]
     Active Substance: POLYETHYLENE GLYCOL 3350\POTASSIUM CHLORIDE\SODIUM BICARBONATE\SODIUM CHLORIDE
     Indication: Product used for unknown indication
     Dosage: ELKE 12U 1 ZAKJE BIJ CONSTIPATIE?ENGLISH TRANSLATION: EVERY 12 HOURS 1 BAG IN CASE OF CONSTIPATION
     Route: 065
  4. ZANTAC [Concomitant]
     Active Substance: RANITIDINE HYDROCHLORIDE
     Indication: Product used for unknown indication
     Dosage: 300 MG
     Route: 065
  5. Ibuprofen AB 600 MG [Concomitant]
     Indication: Product used for unknown indication
     Dosage: 900 MG
     Route: 065
  6. PRIMPERAN 10MG [Concomitant]
     Indication: Product used for unknown indication
     Dosage: ELKE 8U 1 TABLET BIJ NAUSEA?ENGLISH TRANSLATION: EVERY 8 HOURS 1 TABLET IN CASE OF NAUSEA
     Route: 065
  7. DAFALGAN FORTE BRUISTABLETTEN 1 G/ effervescent tablet 1G [Concomitant]
     Indication: Product used for unknown indication
     Route: 065
  8. Diclofenac Mylan 75 MG [Concomitant]
     Indication: Product used for unknown indication
     Dosage: 150 MG?12U EN 6U VOOR DE CHEMOTHERAPIE ENGLISH TRANSLATION: 12 AND 6 HOURS BEFORE CHEMOTHERAPY
     Route: 065
  9. DEXAMETHASONE [Concomitant]
     Active Substance: DEXAMETHASONE
     Indication: Product used for unknown indication
     Dosage: 12U EN 6U VOOR DE CHEMOTHERAPIE?ENGLISH TRANSLATION: 12 AND 6 HOURS BEFORE CHEMOTHERAPY
     Route: 065
  10. TRAMADOL HYDROCHLORIDE [Concomitant]
     Active Substance: TRAMADOL HYDROCHLORIDE
     Indication: Product used for unknown indication
     Dosage: LKE 6U 1 ZUIGTABLET?ENGLISH TRANSLATION: EVERY 6 HOURS 1 LOZENGE
     Route: 065
  11. MOTILIUM [Concomitant]
     Active Substance: DOMPERIDONE
     Indication: Product used for unknown indication
     Dosage: INDIEN ONVOLDOENDE EFFECT VAN PRIMPERAN TEGEN MISSELIJKHEID?ENGLISH TRANSLATION: IN CASE OF INSUFFIC
     Route: 065

REACTIONS (3)
  - Throat irritation [Recovered/Resolved]
  - Pharyngeal swelling [Recovered/Resolved]
  - Nausea [Recovered/Resolved]

NARRATIVE: CASE EVENT DATE: 20221118
